FAERS Safety Report 14183839 (Version 1)
Quarter: 2017Q4

REPORT INFORMATION
  Report Type: Spontaneous
  Country: GB (occurrence: GB)
  Receive Date: 20171113
  Receipt Date: 20171113
  Transmission Date: 20180321
  Serious: Yes (Death, Hospitalization)
  Sender: FDA-Public Use
  Company Number: GB-TEVA-824292ACC

PATIENT
  Age: 73 Year
  Sex: Male

DRUGS (5)
  1. LIPITOR [Suspect]
     Active Substance: ATORVASTATIN CALCIUM
     Indication: BLOOD CHOLESTEROL INCREASED
     Route: 048
     Dates: start: 2000, end: 200012
  2. ASPIRIN. [Concomitant]
     Active Substance: ASPIRIN
     Route: 065
  3. METFORMIN [Suspect]
     Active Substance: METFORMIN HYDROCHLORIDE
     Indication: DIABETES MELLITUS
     Dosage: DOSE: TDS
     Route: 048
     Dates: start: 2000, end: 200103
  4. ADALAT [Concomitant]
     Active Substance: NIFEDIPINE
     Route: 065
  5. TENORETIC [Concomitant]
     Active Substance: ATENOLOL\CHLORTHALIDONE
     Route: 065

REACTIONS (6)
  - Respiratory failure [Fatal]
  - Drug interaction [Unknown]
  - Weight decreased [Not Recovered/Not Resolved]
  - Burning sensation [Recovered/Resolved]
  - Paralysis [Not Recovered/Not Resolved]
  - Muscular weakness [Not Recovered/Not Resolved]

NARRATIVE: CASE EVENT DATE: 20001214
